FAERS Safety Report 13823790 (Version 2)
Quarter: 2017Q3

REPORT INFORMATION
  Report Type: Spontaneous
  Country: US (occurrence: US)
  Receive Date: 20170802
  Receipt Date: 20170818
  Transmission Date: 20171127
  Serious: No
  Sender: FDA-Public Use
  Company Number: US-PFIZER INC-2017326569

PATIENT
  Age: 52 Year
  Sex: Female
  Weight: 83.18 kg

DRUGS (24)
  1. LYRICA [Suspect]
     Active Substance: PREGABALIN
     Dosage: 225 MG, 3X/DAY
  2. AMMONIUM LACTATE. [Concomitant]
     Active Substance: AMMONIUM LACTATE
     Indication: DRY SKIN
     Dosage: UNK UNK, 2X/DAY, (APPLY TO FEET )
  3. ONDANSETRON HYDROCHLORIDE. [Concomitant]
     Active Substance: ONDANSETRON HYDROCHLORIDE
     Indication: NAUSEA
     Dosage: 4 MG, AS NEEDED, (MOUTH EVERY 12 HOURS )
     Route: 048
  4. CYMBALTA [Concomitant]
     Active Substance: DULOXETINE HYDROCHLORIDE
     Dosage: 90 MG, UNK
  5. LIDODERM [Concomitant]
     Active Substance: LIDOCAINE
     Dosage: UNK UNK, AS NEEDED, (APPLY TO FEET 12 HOURS )
     Route: 062
  6. ISOMETHEPTENE DICHLORAL APAP [Concomitant]
     Indication: HEADACHE
     Dosage: UNK, [DICHLORALPHENAZONE-100MG/ISOMETHEPTENE MUCATE-65 MG/, PARACETAMOL-325 MG],1-2 CAPSULES BY
     Route: 048
  7. CYMBALTA [Concomitant]
     Active Substance: DULOXETINE HYDROCHLORIDE
     Dosage: UNK (40 PTCH)
     Route: 062
  8. LYRICA [Suspect]
     Active Substance: PREGABALIN
     Dosage: 75 MG, 3X/DAY
  9. METFORMIN HCL [Concomitant]
     Active Substance: METFORMIN HYDROCHLORIDE
     Dosage: 1000 MG, 2X/DAY
     Route: 048
  10. SILVER SULFADIAZINE. [Concomitant]
     Active Substance: SILVER SULFADIAZINE
     Indication: WOUND
     Dosage: UNK UNK, AS NEEDED,(APPLY TO WOUNDS AS DIRECTED )
  11. INVOKANA [Concomitant]
     Active Substance: CANAGLIFLOZIN
     Dosage: 300 MG, 1X/DAY, (IN THE MORNING)
     Route: 048
  12. LYRICA [Suspect]
     Active Substance: PREGABALIN
     Indication: DIABETIC NEUROPATHY
     Dosage: 750 MG, DAILY, ((3 CAPS AM: 3 CAPS PM; 4 CAPS HS))
  13. LYRICA [Suspect]
     Active Substance: PREGABALIN
     Dosage: 75 MG, 2X/DAY
  14. METHADONE HYDROCHLORIDE. [Concomitant]
     Active Substance: METHADONE HYDROCHLORIDE
     Dosage: 150 MG, DAILY
  15. VOLTAREN [Concomitant]
     Active Substance: DICLOFENAC SODIUM
     Indication: PAIN
     Dosage: 0.1 G, AS NEEDED, (EVERY 6 HOURS )
     Route: 061
  16. LEVEMIR [Concomitant]
     Active Substance: INSULIN DETEMIR
     Indication: BLOOD GLUCOSE
     Dosage: UNK, (10 UNITS SUBCUTANEOUSLY EVERY NIGHT, MAY INCREASE 1 UNIT EVERY 3 DAYS OBTAIN FBG IN 90-120 RA)
     Route: 058
  17. ZOFRAN [Concomitant]
     Active Substance: ONDANSETRON HYDROCHLORIDE
     Indication: NAUSEA
     Dosage: 4 MG, AS NEEDED, (EVERY 12 HOURS )
     Route: 060
  18. GABAPENTIN. [Concomitant]
     Active Substance: GABAPENTIN
     Dosage: UNK, (300,100,400)
  19. OXYCODONE HYDROCHLORIDE. [Concomitant]
     Active Substance: OXYCODONE HYDROCHLORIDE
     Indication: PAIN IN EXTREMITY
     Dosage: 5 MG, AS NEEDED (TAKE 1-2 TABS BY MOUTH EVERY 6-8. HOURS)
     Route: 048
  20. LYRICA [Suspect]
     Active Substance: PREGABALIN
     Dosage: 75 MG, UNK (3 IN AM, 2 @ NOON, 3 PM 3,3,3)
  21. PAROXETINE HCL [Concomitant]
     Active Substance: PAROXETINE HYDROCHLORIDE
     Dosage: 20 MG, UNK
  22. BUSPIRONE HCL [Concomitant]
     Active Substance: BUSPIRONE HYDROCHLORIDE
     Dosage: 10 MG, AS NEEDED, (ONE TAB THREE TIMES DAILY)
  23. ONDANSETRON HYDROCHLORIDE. [Concomitant]
     Active Substance: ONDANSETRON HYDROCHLORIDE
     Indication: VOMITING
  24. CYMBALTA [Concomitant]
     Active Substance: DULOXETINE HYDROCHLORIDE
     Dosage: 30 MG, DAILY
     Route: 048

REACTIONS (8)
  - Gait disturbance [Unknown]
  - Dysaesthesia [Unknown]
  - Hypoaesthesia [Unknown]
  - Allodynia [Unknown]
  - Sensory disturbance [Unknown]
  - Reflexes abnormal [Unknown]
  - Drug ineffective [Unknown]
  - Prescribed overdose [Unknown]
